FAERS Safety Report 25416382 (Version 1)
Quarter: 2025Q2

REPORT INFORMATION
  Report Type: Spontaneous
  Country: US (occurrence: US)
  Receive Date: 20250610
  Receipt Date: 20250610
  Transmission Date: 20250716
  Serious: Yes (Hospitalization, Other)
  Sender: JOHNSON AND JOHNSON
  Company Number: US-JNJFOC-20250601477

PATIENT

DRUGS (1)
  1. CARVYKTI [Suspect]
     Active Substance: CILTACABTAGENE AUTOLEUCEL
     Indication: Product used for unknown indication
     Route: 065

REACTIONS (3)
  - Spinal operation [Not Recovered/Not Resolved]
  - Post procedural complication [Not Recovered/Not Resolved]
  - Neurotoxicity [Unknown]
